FAERS Safety Report 4826363-0 (Version None)
Quarter: 2005Q4

REPORT INFORMATION
  Report Type: 
  Country: None (occurrence: None)
  Receive Date: 20051111
  Receipt Date: 20051103
  Transmission Date: 20060501
  Serious: Yes (Other)
  Sender: FDA-Public Use
  Company Number: PHFR2005GB03628

PATIENT
  Age: 45 Year
  Sex: Female
  Weight: 65 kg

DRUGS (2)
  1. DICLOFENAC [Suspect]
     Indication: ARTHRITIS
     Dosage: 50MG DAILY
     Route: 048
     Dates: start: 20050902, end: 20050916
  2. MISOPROSTOL [Suspect]
     Dosage: 200UG DAILY
     Route: 048
     Dates: start: 20050902, end: 20050916

REACTIONS (1)
  - METRORRHAGIA [None]
